FAERS Safety Report 19501041 (Version 1)
Quarter: 2021Q3

REPORT INFORMATION
  Report Type: Spontaneous
  Country: US (occurrence: US)
  Receive Date: 20210706
  Receipt Date: 20210706
  Transmission Date: 20211014
  Serious: Yes (Other)
  Sender: FDA-Public Use
  Company Number: None

PATIENT
  Age: 38 Year
  Sex: Female
  Weight: 95.25 kg

DRUGS (1)
  1. DUPIXENT [Suspect]
     Active Substance: DUPILUMAB
     Indication: DERMATITIS
     Route: 058
     Dates: start: 20200601

REACTIONS (4)
  - Drug hypersensitivity [None]
  - Ocular hyperaemia [None]
  - Periorbital swelling [None]
  - Skin wrinkling [None]

NARRATIVE: CASE EVENT DATE: 20210706
